FAERS Safety Report 9631018 (Version 2)
Quarter: 2014Q1

REPORT INFORMATION
  Report Type: Report from Study
  Country: DE (occurrence: DE)
  Receive Date: 20131018
  Receipt Date: 20140213
  Transmission Date: 20141002
  Serious: Yes (Hospitalization)
  Sender: FDA-Public Use
  Company Number: PHHY2013DE116371

PATIENT
  Sex: Male

DRUGS (8)
  1. AMN107 [Suspect]
     Indication: CHRONIC MYELOID LEUKAEMIA
     Dosage: 600 MG, DAILY
     Route: 048
     Dates: start: 20130708
  2. BISOPROLOL [Concomitant]
     Indication: PULMONARY ARTERIAL HYPERTENSION
     Dosage: 10 MG, DAILY
     Dates: start: 2010
  3. RAMIPRIL [Concomitant]
     Indication: PULMONARY ARTERIAL HYPERTENSION
     Dosage: 5 MG,DAILY
     Dates: start: 2010
  4. PRAVASTATIN [Concomitant]
     Indication: PAIN
     Dosage: 20 MG, DAILY
     Dates: start: 2012
  5. XARELTO [Concomitant]
     Indication: ATRIAL FIBRILLATION
     Dosage: 20 MG, DAILY
     Dates: start: 2012
  6. TAMBOCOR [Concomitant]
     Indication: ATRIAL FIBRILLATION
     Dosage: 200 MG,DAILY
     Dates: start: 2012
  7. MUSARIL [Concomitant]
     Indication: PAIN
     Dates: start: 2012
  8. VALORAN [Concomitant]
     Indication: PAIN
     Dates: start: 2012

REACTIONS (2)
  - Oedema peripheral [Recovering/Resolving]
  - Dyspnoea [Recovered/Resolved]
